FAERS Safety Report 5372260-4 (Version None)
Quarter: 2007Q2

REPORT INFORMATION
  Report Type: 
  Country: None (occurrence: None)
  Receive Date: 20070620
  Receipt Date: 20070309
  Transmission Date: 20071010
  Serious: No
  Sender: FDA-Public Use
  Company Number: 2007RL000056

PATIENT
  Age: 75 Year
  Sex: Female
  Weight: 89.3586 kg

DRUGS (7)
  1. OMACOR [Suspect]
     Indication: BLOOD CHOLESTEROL INCREASED
     Dosage: 2 GM;BID;PO
     Route: 048
     Dates: start: 20061231
  2. OMACOR [Suspect]
     Indication: BLOOD TRIGLYCERIDES INCREASED
     Dosage: 2 GM;BID;PO
     Route: 048
     Dates: start: 20061231
  3. HYZAAR [Concomitant]
  4. ZETIA [Concomitant]
  5. ALBUTEROL [Concomitant]
  6. ADVAIR DISKUS 100/50 [Concomitant]
  7. ASPIRIN CHILDREN [Concomitant]

REACTIONS (7)
  - BLOOD CHOLESTEROL INCREASED [None]
  - CONDITION AGGRAVATED [None]
  - CONSTIPATION [None]
  - HYPERSENSITIVITY [None]
  - HYPERVENTILATION [None]
  - PRURITUS [None]
  - RASH [None]
